FAERS Safety Report 11512498 (Version 2)
Quarter: 2015Q4

REPORT INFORMATION
  Report Type: Report from Study
  Country: AT (occurrence: AT)
  Receive Date: 20150916
  Receipt Date: 20151105
  Transmission Date: 20160304
  Serious: Yes (Death, Hospitalization, Other)
  Sender: FDA-Public Use
  Company Number: PHHY2015AT110523

PATIENT
  Sex: Female
  Weight: 71 kg

DRUGS (11)
  1. CAL D VITA [Concomitant]
     Indication: PRODUCT USED FOR UNKNOWN INDICATION
     Dosage: 1-0-0
     Route: 065
  2. PANTOLOC//PANTOPRAZOLE SODIUM SESQUIHYDRATE [Concomitant]
     Active Substance: PANTOPRAZOLE SODIUM
     Indication: PRODUCT USED FOR UNKNOWN INDICATION
     Dosage: 40 MG, 1-0-0
     Route: 065
  3. LEGALON [Concomitant]
     Active Substance: MILK THISTLE
     Indication: PRODUCT USED FOR UNKNOWN INDICATION
     Dosage: 1-0-0
     Route: 065
  4. LEVETIRACETAM. [Concomitant]
     Active Substance: LEVETIRACETAM
     Indication: PRODUCT USED FOR UNKNOWN INDICATION
     Dosage: 100 MG, 1-0-1
     Route: 065
  5. AROMASIN [Concomitant]
     Active Substance: EXEMESTANE
     Indication: PRODUCT USED FOR UNKNOWN INDICATION
     Dosage: 25 MG, QD
     Route: 065
     Dates: start: 20150128, end: 20150206
  6. UROSIN [Concomitant]
     Active Substance: ALLOPURINOL
     Indication: PRODUCT USED FOR UNKNOWN INDICATION
     Dosage: 300 MG, 0-?-0
     Route: 065
  7. OLEOVIT D3 [Concomitant]
     Indication: PRODUCT USED FOR UNKNOWN INDICATION
     Dosage: 25 GTT, QW
     Route: 065
  8. AFINITOR [Suspect]
     Active Substance: EVEROLIMUS
     Dosage: 5 MG, UNK
     Route: 065
     Dates: start: 20150210, end: 20150217
  9. EUTHYROX [Concomitant]
     Active Substance: LEVOTHYROXINE SODIUM
     Indication: PRODUCT USED FOR UNKNOWN INDICATION
     Dosage: 75 UG, ? -0-0
     Route: 065
  10. VIMPAT [Concomitant]
     Active Substance: LACOSAMIDE
     Indication: PRODUCT USED FOR UNKNOWN INDICATION
     Dosage: 200 MG, 1-0-1
     Route: 065
  11. AFINITOR [Suspect]
     Active Substance: EVEROLIMUS
     Indication: BREAST CANCER
     Dosage: 5 MG, QD
     Route: 065
     Dates: start: 20150128, end: 20150206

REACTIONS (12)
  - Brain oedema [Unknown]
  - Epistaxis [Recovered/Resolved]
  - Cough [Recovered/Resolved]
  - Metastases to meninges [Fatal]
  - Partial seizures [Recovered/Resolved]
  - Chapped lips [Recovered/Resolved]
  - Headache [Not Recovered/Not Resolved]
  - Epilepsy [Recovered/Resolved]
  - Faeces pale [Recovered/Resolved]
  - Brain neoplasm [Unknown]
  - Nausea [Recovered/Resolved]
  - Feeling cold [Recovered/Resolved]

NARRATIVE: CASE EVENT DATE: 201502
